FAERS Safety Report 8530188 (Version 8)
Quarter: 2014Q1

REPORT INFORMATION
  Report Type: Spontaneous
  Country: US (occurrence: US)
  Receive Date: 20120425
  Receipt Date: 20140220
  Transmission Date: 20141002
  Serious: Yes (Hospitalization, Other)
  Sender: FDA-Public Use
  Company Number: US-ASTRAZENECA-2012SE24989

PATIENT
  Age: 77 Year
  Sex: Female
  Weight: 86.2 kg

DRUGS (12)
  1. NEXIUM [Suspect]
     Indication: HIATUS HERNIA
     Route: 048
     Dates: start: 2012, end: 20140205
  2. NEXIUM [Suspect]
     Indication: GASTROOESOPHAGEAL REFLUX DISEASE
     Route: 048
     Dates: start: 2012, end: 20140205
  3. NEXIUM [Suspect]
     Indication: GASTROOESOPHAGEAL REFLUX DISEASE
     Route: 048
     Dates: start: 2012, end: 20140205
  4. NEXIUM [Suspect]
     Indication: HIATUS HERNIA
     Dosage: TWICE A DAY, IF THE REFLUX IS BAD
     Route: 048
  5. NEXIUM [Suspect]
     Indication: GASTROOESOPHAGEAL REFLUX DISEASE
     Dosage: TWICE A DAY, IF THE REFLUX IS BAD
     Route: 048
  6. NEXIUM [Suspect]
     Indication: GASTROOESOPHAGEAL REFLUX DISEASE
     Dosage: TWICE A DAY, IF THE REFLUX IS BAD
     Route: 048
  7. NEXIUM [Suspect]
     Indication: HIATUS HERNIA
     Dosage: EXTRA DOSE OF NEXIUM AT NIGHT AS NEEDED
     Route: 048
  8. NEXIUM [Suspect]
     Indication: GASTROOESOPHAGEAL REFLUX DISEASE
     Dosage: EXTRA DOSE OF NEXIUM AT NIGHT AS NEEDED
     Route: 048
  9. NEXIUM [Suspect]
     Indication: GASTROOESOPHAGEAL REFLUX DISEASE
     Dosage: EXTRA DOSE OF NEXIUM AT NIGHT AS NEEDED
     Route: 048
  10. METOPROLOL TARTRATE [Suspect]
     Indication: BLOOD PRESSURE ABNORMAL
     Route: 048
     Dates: start: 2006
  11. SYNTHROID [Concomitant]
     Indication: THYROID DISORDER
     Route: 048
     Dates: start: 2012
  12. SYNTHROID [Concomitant]
     Indication: PROPHYLAXIS
     Route: 048
     Dates: start: 2012

REACTIONS (17)
  - Hiatus hernia [Not Recovered/Not Resolved]
  - Thyroid cancer [Recovered/Resolved]
  - Oesophageal perforation [Unknown]
  - Gastric perforation [Unknown]
  - Convulsion [Not Recovered/Not Resolved]
  - Regurgitation [Unknown]
  - Gastrooesophageal reflux disease [Unknown]
  - Procedural pain [Unknown]
  - Feeling abnormal [Unknown]
  - Eructation [Unknown]
  - Throat irritation [Unknown]
  - Chest pain [Not Recovered/Not Resolved]
  - Dyspepsia [Unknown]
  - Chest pain [Not Recovered/Not Resolved]
  - Drug dose omission [Not Recovered/Not Resolved]
  - Intentional drug misuse [Unknown]
  - Off label use [Unknown]
